FAERS Safety Report 7277638-X (Version None)
Quarter: 2011Q1

REPORT INFORMATION
  Report Type: 
  Country: None (occurrence: None)
  Receive Date: 20110207
  Receipt Date: 20110128
  Transmission Date: 20110831
  Serious: Yes (Hospitalization)
  Sender: FDA-Public Use
  Company Number: US-ASTELLAS-2011US000458

PATIENT

DRUGS (23)
  1. PROGRAF [Suspect]
     Indication: HEART TRANSPLANT
     Dosage: 4 MG, UID/QD
     Route: 048
     Dates: start: 20060731
  2. OMEPRAZOLE [Concomitant]
     Indication: GASTROOESOPHAGEAL REFLUX DISEASE
     Dosage: 20 MG, UID/QD
     Route: 048
  3. KADIAN [Concomitant]
     Indication: PAIN
     Dosage: 100 MG, BID
     Route: 048
  4. PLAVIX [Concomitant]
     Indication: CARDIAC DISORDER
     Dosage: 75 MG, UID/QD
     Route: 048
  5. PROVIGIL [Concomitant]
     Indication: SLEEP DISORDER
     Dosage: 200 MG, UID/QD
     Route: 048
  6. KLOR-CON [Concomitant]
     Indication: BLOOD POTASSIUM
     Dosage: 40 MEQ, BID
     Route: 048
     Dates: start: 19990101
  7. VITAMIN D2 [Concomitant]
     Indication: PHOTOSENSITIVITY REACTION
     Dosage: 50000 U, WEEKLY
     Route: 048
  8. FLUOXETINE [Concomitant]
     Indication: ANTIDEPRESSANT THERAPY
     Dosage: 14 MG, UID/QD
     Route: 048
  9. EUMETANIDE [Concomitant]
     Indication: DIURETIC THERAPY
     Dosage: 1 MG, UID/QD
     Route: 048
  10. METOPROLOL TARTRATE [Concomitant]
     Indication: BLOOD PRESSURE
     Dosage: 50 MG, UID/QD
     Route: 048
  11. RAPAMUNE [Concomitant]
     Indication: HEART TRANSPLANT
     Dosage: 1 MG, UID/QD
     Route: 048
     Dates: start: 20060731
  12. OXYCODONE HCL [Concomitant]
     Indication: BACK PAIN
     Dosage: 120-180 MG, UID/QD
  13. ZETIA [Concomitant]
     Indication: BLOOD CHOLESTEROL
     Dosage: 10 MG, UID/QD
     Route: 048
  14. FOLIC ACID [Concomitant]
     Indication: SUPPLEMENTATION THERAPY
     Dosage: 2000 UG, UID/QD
     Route: 048
  15. LANTUS [Concomitant]
     Indication: DIABETES MELLITUS
     Dosage: 8 U, UID/QD
     Route: 058
  16. NOVOLOG [Concomitant]
     Indication: DIABETES MELLITUS
     Dosage: UNK U, PRN
     Route: 058
  17. METOLAZONE [Concomitant]
     Indication: FLUID REPLACEMENT
     Dosage: 5 MG, M/W/F
     Route: 048
  18. WARFARIN SODIUM [Concomitant]
     Indication: ANTICOAGULANT THERAPY
     Dosage: 4 MG, UID/QD
     Route: 048
     Dates: start: 19990101
  19. AVODART [Concomitant]
     Indication: PROSTATIC DISORDER
     Dosage: 45 MG, UID/QD
     Route: 048
  20. ZANAFLEX [Concomitant]
     Indication: MUSCLE SPASMS
     Dosage: 4 MG, Q 4-6 HRS
     Route: 048
  21. GABAPENTIN [Concomitant]
     Indication: DIABETIC NEUROPATHY
     Dosage: 300 MG, TID
     Route: 048
  22. REVATIO [Concomitant]
     Indication: HYPERTENSION
     Dosage: 20 MG, TID
     Route: 048
  23. SERTRALINE [Concomitant]
     Indication: DEPRESSION
     Dosage: 20 MG, UID/QD
     Route: 048

REACTIONS (2)
  - PULMONARY ARTERIAL HYPERTENSION [None]
  - CARDIAC FAILURE CONGESTIVE [None]
